FAERS Safety Report 11813726 (Version 1)
Quarter: 2015Q4

REPORT INFORMATION
  Report Type: Spontaneous
  Country: US (occurrence: None)
  Receive Date: 20151208
  Receipt Date: 20151208
  Transmission Date: 20160305
  Serious: Yes (Hospitalization)
  Sender: FDA-Public Use
  Company Number: None

PATIENT
  Age: 50 Year
  Sex: Female
  Weight: 63.6 kg

DRUGS (9)
  1. RIBAVIRIN. [Suspect]
     Active Substance: RIBAVIRIN
     Indication: HEPATITIS C
     Route: 048
     Dates: start: 20150623, end: 20150722
  2. ROPINIROLE. [Concomitant]
     Active Substance: ROPINIROLE
  3. XIFAXAN [Concomitant]
     Active Substance: RIFAXIMIN
  4. DEXTRAMORPHONE [Concomitant]
  5. CITALOPRAM [Concomitant]
     Active Substance: CITALOPRAM HYDROBROMIDE
  6. SAXAGLIPTIN [Concomitant]
     Active Substance: SAXAGLIPTIN
  7. LACTULOSE. [Concomitant]
     Active Substance: LACTULOSE
  8. VIEKIRA PAK [Suspect]
     Active Substance: DASABUVIR\OMBITASVIR\PARITAPREVIR\RITONAVIR
     Indication: HEPATITIS C
     Dosage: 12.5/75/50/250MG
     Route: 048
     Dates: start: 20150623, end: 20150917
  9. ALPRAZOLAM. [Concomitant]
     Active Substance: ALPRAZOLAM

REACTIONS (1)
  - Hyponatraemia [None]

NARRATIVE: CASE EVENT DATE: 20150721
